FAERS Safety Report 4344265-3 (Version None)
Quarter: 2004Q2

REPORT INFORMATION
  Report Type: 
  Country: None (occurrence: None)
  Receive Date: 20040419
  Receipt Date: 20040402
  Transmission Date: 20050107
  Serious: Yes (Hospitalization)
  Sender: FDA-Public Use
  Company Number: A04200400150

PATIENT
  Sex: Female

DRUGS (2)
  1. ARIXTRA [Suspect]
     Indication: KNEE ARTHROPLASTY
     Dosage: 2.5 MG OD
     Route: 058
  2. ARIXTRA [Suspect]
     Indication: THROMBOSIS PROPHYLAXIS
     Dosage: 2.5 MG OD
     Route: 058

REACTIONS (3)
  - DRUG INEFFECTIVE [None]
  - POST PROCEDURAL HAEMATOMA [None]
  - VENOUS THROMBOSIS LIMB [None]
